FAERS Safety Report 15928564 (Version 1)
Quarter: 2019Q1

REPORT INFORMATION
  Report Type: Spontaneous
  Country: LS (occurrence: LS)
  Receive Date: 20190206
  Receipt Date: 20190206
  Transmission Date: 20190417
  Serious: Yes (Death, Hospitalization, Other)
  Sender: FDA-Public Use
  Company Number: LS-PFIZER INC-2019051783

PATIENT
  Age: 39 Year
  Sex: Male
  Weight: 56.9 kg

DRUGS (20)
  1. AMINOSALICYLIC ACID [Suspect]
     Active Substance: AMINOSALICYLIC ACID
     Indication: TUBERCULOSIS
     Dosage: 8000 MG, 1X/DAY
     Route: 048
     Dates: start: 20180409, end: 20180822
  2. DAPSONE. [Concomitant]
     Active Substance: DAPSONE
     Dosage: UNK
     Dates: start: 20180912
  3. DELAMANID [Suspect]
     Active Substance: DELAMANID
     Dosage: UNK
     Dates: end: 20190115
  4. PROTIONAMIDE [Suspect]
     Active Substance: PROTIONAMIDE
     Indication: TUBERCULOSIS
     Dosage: 750 MG, 1X/DAY
     Route: 048
     Dates: start: 20180409, end: 20180822
  5. MOXIFLOXACIN. [Suspect]
     Active Substance: MOXIFLOXACIN
     Indication: TUBERCULOSIS
     Dosage: 400 MG, DAILY
     Route: 048
     Dates: start: 20180409, end: 20180822
  6. CO TRIMOXAZOLE [SULFAMETHOXAZOLE;TRIMETHOPRIM] [Concomitant]
     Indication: HIV INFECTION
  7. LAMIVUDINE. [Concomitant]
     Active Substance: LAMIVUDINE
     Dosage: UNK
     Dates: start: 20180423, end: 20180822
  8. PYRIDOXINE [Concomitant]
     Active Substance: PYRIDOXINE
     Indication: PROPHYLAXIS
  9. CLOFAZIMINE [Suspect]
     Active Substance: CLOFAZIMINE
     Dosage: UNK
     Dates: end: 20190115
  10. CYCLOSERINE. [Suspect]
     Active Substance: CYCLOSERINE
     Indication: TUBERCULOSIS
     Dosage: 750 MG, DAILY
     Route: 048
     Dates: start: 20180409, end: 20180822
  11. PYRIDOXINE [Concomitant]
     Active Substance: PYRIDOXINE
     Indication: TUBERCULOSIS
     Dosage: UNK
     Dates: start: 20180409, end: 20180822
  12. CLOFAZIMINE [Suspect]
     Active Substance: CLOFAZIMINE
     Indication: TUBERCULOSIS
     Dosage: 100 MG, 1X/DAY
     Route: 048
     Dates: start: 20180409, end: 20180822
  13. MOXIFLOXACIN. [Suspect]
     Active Substance: MOXIFLOXACIN
     Dosage: UNK
     Dates: end: 20190115
  14. TENOFOVIR DISOPROXIL FUMARATE. [Concomitant]
     Active Substance: TENOFOVIR DISOPROXIL FUMARATE
     Dosage: UNK
     Dates: start: 20180423, end: 20180822
  15. CO TRIMOXAZOLE [SULFAMETHOXAZOLE;TRIMETHOPRIM] [Concomitant]
     Indication: TUBERCULOSIS
     Dosage: UNK
     Dates: start: 20180316, end: 20180822
  16. LINEZOLID. [Suspect]
     Active Substance: LINEZOLID
     Indication: TUBERCULOSIS
     Dosage: 600 MG, 1X/DAY
     Route: 048
     Dates: start: 20180905, end: 20190115
  17. DELAMANID [Suspect]
     Active Substance: DELAMANID
     Indication: TUBERCULOSIS
     Dosage: 200 MG, 1X/DAY
     Route: 048
     Dates: start: 20180409, end: 20180822
  18. CYCLOSERINE. [Suspect]
     Active Substance: CYCLOSERINE
     Dosage: UNK
     Dates: end: 20190115
  19. EFAVIRENZ. [Concomitant]
     Active Substance: EFAVIRENZ
     Indication: HIV INFECTION
     Dosage: UNK
     Dates: start: 20180423, end: 20180822
  20. LEVOFLOXACIN. [Suspect]
     Active Substance: LEVOFLOXACIN
     Indication: TUBERCULOSIS
     Dosage: UNK
     Dates: start: 20180409, end: 20180822

REACTIONS (9)
  - Meningitis [Fatal]
  - Altered state of consciousness [Fatal]
  - Liver function test increased [Unknown]
  - Hepatic failure [Unknown]
  - Pyrexia [Not Recovered/Not Resolved]
  - Renal failure [Unknown]
  - Condition aggravated [Unknown]
  - Musculoskeletal stiffness [Unknown]
  - Sepsis [Unknown]

NARRATIVE: CASE EVENT DATE: 20180627
